FAERS Safety Report 18230026 (Version 2)
Quarter: 2020Q3

REPORT INFORMATION
  Report Type: Spontaneous
  Country: SG (occurrence: SG)
  Receive Date: 20200904
  Receipt Date: 20200929
  Transmission Date: 20201103
  Serious: Yes (Other)
  Sender: FDA-Public Use
  Company Number: SG-TEVA-2020-SG-1821292

PATIENT
  Age: 57 Year
  Sex: Female

DRUGS (1)
  1. DOCETAXEL. [Suspect]
     Active Substance: DOCETAXEL
     Indication: BREAST CANCER METASTATIC
     Dosage: ADMINISTERED OVER 3H
     Route: 042

REACTIONS (3)
  - Cystoid macular oedema [Recovered/Resolved]
  - Visual impairment [Recovering/Resolving]
  - Maculopathy [Recovering/Resolving]
